FAERS Safety Report 16893129 (Version 3)
Quarter: 2019Q4

REPORT INFORMATION
  Report Type: Report from Study
  Country: None (occurrence: GR)
  Receive Date: 20191008
  Receipt Date: 20191106
  Transmission Date: 20200122
  Serious: Yes (Hospitalization)
  Sender: FDA-Public Use
  Company Number: GR-ABBVIE-19K-066-2948998-00

PATIENT
  Age: 64 Year
  Sex: Male

DRUGS (3)
  1. DUODOPA [Suspect]
     Active Substance: CARBIDOPA\LEVODOPA
     Indication: PARKINSON^S DISEASE
     Dosage: MORNING DOSE: 15ML; CONTINUOUS RATE: 4.5ML/H EXTRA DOSE: 1.4ML
     Route: 050
     Dates: start: 20190214, end: 20191001
  2. MADOPAR [Concomitant]
     Active Substance: BENSERAZIDE HYDROCHLORIDE\LEVODOPA
     Indication: PARKINSON^S DISEASE
     Dosage: (300+75)MG
     Route: 048
  3. DUODOPA [Suspect]
     Active Substance: CARBIDOPA\LEVODOPA
     Dosage: MORNING DOSE: 14.6ML; CONTINUOUS RATE: 6ML/H; EXTRA DOSE: 1.4ML
     Route: 050
     Dates: start: 20191001

REACTIONS (2)
  - Deep brain stimulation [Recovered/Resolved]
  - Hospitalisation [Recovered/Resolved]

NARRATIVE: CASE EVENT DATE: 20191025
